FAERS Safety Report 4490663-7 (Version None)
Quarter: 2004Q4

REPORT INFORMATION
  Report Type: 
  Country: None (occurrence: None)
  Receive Date: 20041102
  Receipt Date: 20031218
  Transmission Date: 20050328
  Serious: Yes (Other)
  Sender: FDA-Public Use
  Company Number: US-GLAXOSMITHKLINE-A0443660A

PATIENT
  Age: 51 Year
  Sex: Male
  Weight: 63.6 kg

DRUGS (7)
  1. COMBIVIR [Suspect]
     Indication: HIV INFECTION
     Route: 048
  2. LITHIUM CARBONATE [Suspect]
     Dosage: 900MG PER DAY
     Route: 048
  3. BACTRIM [Suspect]
  4. CONCERTA [Suspect]
     Dosage: 54MG PER DAY
  5. SUSTIVA [Suspect]
     Indication: HIV INFECTION
  6. ZOCOR [Suspect]
     Dosage: 80MG PER DAY
     Route: 048
     Dates: start: 20031007
  7. ZYPREXA [Concomitant]
     Dosage: 2.5MG PER DAY

REACTIONS (6)
  - ASTHENIA [None]
  - DIARRHOEA [None]
  - DRUG INTERACTION [None]
  - NAUSEA [None]
  - THERAPEUTIC AGENT TOXICITY [None]
  - VOMITING [None]
